FAERS Safety Report 14906333 (Version 1)
Quarter: 2018Q2

REPORT INFORMATION
  Report Type: Spontaneous
  Country: US (occurrence: US)
  Receive Date: 20180517
  Receipt Date: 20180517
  Transmission Date: 20180711
  Serious: No
  Sender: FDA-Public Use
  Company Number: US-SA-2018SA091661

PATIENT
  Age: 79 Year
  Sex: Female

DRUGS (3)
  1. SOLOSTAR [Suspect]
     Active Substance: DEVICE
     Indication: TYPE 2 DIABETES MELLITUS
     Dosage: AT BEDTIME AND ANOTHER IN THE MORNING
  2. NOVOLOG [Suspect]
     Active Substance: INSULIN ASPART
     Route: 065
  3. LANTUS SOLOSTAR [Suspect]
     Active Substance: INSULIN GLARGINE
     Indication: TYPE 2 DIABETES MELLITUS
     Dosage: DOSE:15 UNIT(S)
     Route: 051
     Dates: start: 20180303, end: 20180315

REACTIONS (6)
  - Drug ineffective [Unknown]
  - Hyperglycaemia [Unknown]
  - Seasonal allergy [Unknown]
  - Somnolence [Unknown]
  - Malaise [Unknown]
  - Reading disorder [Unknown]
